FAERS Safety Report 5808190-0 (Version None)
Quarter: 2008Q3

REPORT INFORMATION
  Report Type: 
  Country: None (occurrence: None)
  Receive Date: 20080709
  Receipt Date: 20080630
  Transmission Date: 20090109
  Serious: Yes (Other)
  Sender: FDA-Public Use
  Company Number: 2008017300

PATIENT
  Age: 24 Year
  Sex: Female
  Weight: 62.5964 kg

DRUGS (2)
  1. PURELL ORIGINAL (ETHYL ALCOHOL) [Suspect]
     Indication: INFECTION PROPHYLAXIS
     Dosage: DIME SIZE 2X PER DAY (2 IN 1 D), TOPICAL
     Route: 061
     Dates: start: 20080509, end: 20080629
  2. NECON (ETHINYLESTRADIOL, NORETHISTERONE) [Concomitant]

REACTIONS (3)
  - CAUSTIC INJURY [None]
  - SKIN DISCOLOURATION [None]
  - SKIN HAEMORRHAGE [None]
